FAERS Safety Report 5412966-1 (Version None)
Quarter: 2007Q3

REPORT INFORMATION
  Report Type: 
  Country: None (occurrence: None)
  Receive Date: 20070809
  Receipt Date: 20070725
  Transmission Date: 20080115
  Serious: Yes (Hospitalization, Other)
  Sender: FDA-Public Use
  Company Number: CHNY2007GB02636

PATIENT
  Age: 28 Year
  Sex: Male

DRUGS (2)
  1. IBUPROFEN [Suspect]
     Indication: TOOTHACHE
     Dosage: 600 MG, TID, ORAL
     Route: 048
  2. PARACETAMOL (NGX) (PARACETAMOL) UNKNOWN [Suspect]
     Dosage: 7 G, ORAL
     Route: 048

REACTIONS (2)
  - ABSCESS [None]
  - ACCIDENTAL OVERDOSE [None]
